FAERS Safety Report 9497245 (Version 2)
Quarter: 2013Q4

REPORT INFORMATION
  Report Type: Report from Study
  Country: BR (occurrence: BR)
  Receive Date: 20130904
  Receipt Date: 20131008
  Transmission Date: 20140711
  Serious: Yes (Hospitalization, Other)
  Sender: FDA-Public Use
  Company Number: PHHY2013BR096750

PATIENT
  Sex: Female

DRUGS (1)
  1. DIOVAN AMLO FIX [Suspect]
     Indication: HYPERTENSION
     Dosage: 1 DF, QD (320 MG VAL / 10 MG AMLO)
     Dates: start: 201303

REACTIONS (4)
  - Gastrointestinal disorder [Recovering/Resolving]
  - Diverticulitis [Recovering/Resolving]
  - Stress [Unknown]
  - Hypertension [Recovering/Resolving]
